FAERS Safety Report 20538285 (Version 1)
Quarter: 2022Q1

REPORT INFORMATION
  Report Type: Spontaneous
  Country: JP (occurrence: JP)
  Receive Date: 20220302
  Receipt Date: 20220302
  Transmission Date: 20220423
  Serious: Yes (Death, Hospitalization, Other)
  Sender: FDA-Public Use
  Company Number: JP-JNJFOC-20210860437

PATIENT
  Age: 88 Year
  Sex: Male
  Weight: 41.5 kg

DRUGS (37)
  1. ERLEADA [Suspect]
     Active Substance: APALUTAMIDE
     Indication: Hormone-refractory prostate cancer
     Route: 048
     Dates: start: 2021, end: 20210806
  2. ZYTIGA [Suspect]
     Active Substance: ABIRATERONE ACETATE
     Indication: Hormone-refractory prostate cancer
     Dosage: BEFORE BREAKFAST
     Route: 048
     Dates: start: 20210816, end: 20210905
  3. VALPROATE SODIUM [Concomitant]
     Active Substance: VALPROATE SODIUM
     Indication: Immobilisation syndrome
     Dosage: AT BEDTIME
     Route: 048
     Dates: start: 20210806, end: 20210817
  4. VALPROATE SODIUM [Concomitant]
     Active Substance: VALPROATE SODIUM
     Dosage: AT BEDTIME
     Route: 048
     Dates: start: 20210818, end: 20210821
  5. PREDONINE [Concomitant]
     Active Substance: PREDNISOLONE
     Dosage: AFTER BREAKFAST
     Route: 048
     Dates: start: 20210816, end: 20210905
  6. CALONAL [Concomitant]
     Active Substance: ACETAMINOPHEN
     Dosage: AFTER BREAKFAST, AFTER DINNER
     Route: 048
     Dates: start: 20210806, end: 20210810
  7. MAGNESIUM OXIDE [Concomitant]
     Active Substance: MAGNESIUM OXIDE
     Dosage: AFTER DINNER
     Route: 048
     Dates: start: 20210806, end: 20210905
  8. ACETAMINOPHEN [Concomitant]
     Active Substance: ACETAMINOPHEN
     Indication: Pyrexia
     Route: 048
     Dates: start: 20210806, end: 20210806
  9. ACETAMINOPHEN [Concomitant]
     Active Substance: ACETAMINOPHEN
     Indication: Pyrexia
     Route: 048
     Dates: start: 20210831, end: 20210831
  10. BICALUTAMIDE [Concomitant]
     Active Substance: BICALUTAMIDE
     Dosage: AFTER BREAKFAST
     Route: 048
     Dates: start: 20210806, end: 20210815
  11. ZOTEPINE [Concomitant]
     Active Substance: ZOTEPINE
     Dosage: AT BEDTIME
     Route: 048
     Dates: start: 20210806, end: 20210817
  12. ZOTEPINE [Concomitant]
     Active Substance: ZOTEPINE
     Dosage: AT BEDTIME
     Route: 048
     Dates: start: 20210818, end: 20210821
  13. SILODOSIN OD [Concomitant]
     Dosage: AFTER BREAKFAST, AFTER DINNER
     Route: 048
     Dates: start: 20210813, end: 20210826
  14. RIVASTIGMINE [Concomitant]
     Active Substance: RIVASTIGMINE
     Dosage: DOSE UNKNOWN
     Route: 062
     Dates: start: 20210814
  15. GENTAMICIN SULFATE [Concomitant]
     Active Substance: GENTAMICIN SULFATE
     Dosage: DOSE UNKNOWN
     Route: 003
     Dates: start: 20210815
  16. TAMSULOSIN HYDROCHLORIDE [Concomitant]
     Active Substance: TAMSULOSIN HYDROCHLORIDE
     Dosage: AFTER BREAKFAST
     Route: 048
     Dates: start: 20210806, end: 20210810
  17. ISOTONIC SODIUM CHLORIDE SOLUTION [Concomitant]
     Active Substance: SODIUM CHLORIDE
     Route: 041
     Dates: start: 20210806, end: 20210808
  18. ISOTONIC SODIUM CHLORIDE SOLUTION [Concomitant]
     Active Substance: SODIUM CHLORIDE
     Route: 041
     Dates: start: 20210809, end: 20210813
  19. ISOTONIC SODIUM CHLORIDE SOLUTION [Concomitant]
     Active Substance: SODIUM CHLORIDE
     Route: 041
     Dates: start: 20210814, end: 20210820
  20. ISOTONIC SODIUM CHLORIDE SOLUTION [Concomitant]
     Active Substance: SODIUM CHLORIDE
     Route: 041
     Dates: start: 20210905, end: 20210905
  21. ISOTONIC SODIUM CHLORIDE SOLUTION [Concomitant]
     Active Substance: SODIUM CHLORIDE
     Route: 041
     Dates: start: 20210810, end: 20210810
  22. PICILLIBACTA [Concomitant]
     Active Substance: AMPICILLIN SODIUM\SULBACTAM SODIUM
     Route: 041
     Dates: start: 20210806, end: 20210808
  23. AMINO ACIDS\DEXTROSE\ELECTROLYTES NOS\VITAMINS [Concomitant]
     Active Substance: AMINO ACIDS\DEXTROSE\ELECTROLYTES NOS\VITAMINS
     Route: 041
     Dates: start: 20210806, end: 20210806
  24. AMINO ACIDS\DEXTROSE\ELECTROLYTES NOS\VITAMINS [Concomitant]
     Active Substance: AMINO ACIDS\DEXTROSE\ELECTROLYTES NOS\VITAMINS
     Route: 041
     Dates: start: 20210807, end: 20210816
  25. AMINO ACIDS\DEXTROSE\ELECTROLYTES NOS\VITAMINS [Concomitant]
     Active Substance: AMINO ACIDS\DEXTROSE\ELECTROLYTES NOS\VITAMINS
     Route: 041
     Dates: start: 20210822, end: 20210822
  26. AMINO ACIDS\DEXTROSE\ELECTROLYTES NOS\VITAMINS [Concomitant]
     Active Substance: AMINO ACIDS\DEXTROSE\ELECTROLYTES NOS\VITAMINS
     Route: 041
     Dates: start: 20210905, end: 20210905
  27. NORNICICAMIN [Concomitant]
     Route: 041
     Dates: start: 20210806, end: 20210816
  28. CEFTRIAXONE SODIUM [Concomitant]
     Active Substance: CEFTRIAXONE SODIUM
     Route: 041
     Dates: start: 20210809, end: 20210813
  29. CILASTATIN SODIUM\IMIPENEM [Concomitant]
     Active Substance: CILASTATIN SODIUM\IMIPENEM
     Route: 041
     Dates: start: 20210814, end: 20210820
  30. CILASTATIN SODIUM\IMIPENEM [Concomitant]
     Active Substance: CILASTATIN SODIUM\IMIPENEM
     Route: 041
     Dates: start: 20210905, end: 20210905
  31. ZOLEDRONIC ACID [Concomitant]
     Active Substance: ZOLEDRONIC ACID
     Route: 041
     Dates: start: 20210816, end: 20210816
  32. LEUPROLIDE ACETATE [Concomitant]
     Active Substance: LEUPROLIDE ACETATE
     Route: 058
     Dates: start: 20210816, end: 20210816
  33. AMANTADINE HYDROCHLORIDE [Concomitant]
     Active Substance: AMANTADINE HYDROCHLORIDE
     Dosage: AFTER BREAKFAST, AFTER DINNER
     Route: 048
     Dates: start: 20210825, end: 20210905
  34. SITAFLOXACIN [Concomitant]
     Active Substance: SITAFLOXACIN
     Dosage: AFTER BREAKFAST
     Route: 048
     Dates: start: 20210827, end: 20210902
  35. SULFAMETHOXAZOLE\TRIMETHOPRIM [Concomitant]
     Active Substance: SULFAMETHOXAZOLE\TRIMETHOPRIM
     Dosage: AFTER BREAKFAST, AFTER DINNER
     Route: 048
     Dates: start: 20210903, end: 20210905
  36. RIFADIN [Concomitant]
     Active Substance: RIFAMPIN
     Dosage: AFTER BREAKFAST, AFTER DINNER
     Route: 048
     Dates: start: 20210903, end: 20210905
  37. ACETAMINOPHEN [Concomitant]
     Active Substance: ACETAMINOPHEN
     Route: 041
     Dates: start: 20210905, end: 20210905

REACTIONS (4)
  - Pneumonia [Fatal]
  - Seizure [Unknown]
  - Pneumonia [Unknown]
  - Hypokalaemia [Unknown]

NARRATIVE: CASE EVENT DATE: 20210806
